FAERS Safety Report 7362553-3 (Version None)
Quarter: 2011Q1

REPORT INFORMATION
  Report Type: 
  Country: None (occurrence: None)
  Receive Date: 20110319
  Receipt Date: 20110309
  Transmission Date: 20110831
  Serious: Yes (Hospitalization)
  Sender: FDA-Public Use
  Company Number: JP-AMGEN-JPNCT2011014638

PATIENT
  Age: 68 Year
  Sex: Male
  Weight: 64 kg

DRUGS (7)
  1. FLUOROURACIL [Suspect]
     Indication: COLORECTAL CANCER
     Route: 040
     Dates: start: 20100824, end: 20110104
  2. CALCIUM LEVOFOLINATE [Concomitant]
     Indication: COLORECTAL CANCER
     Route: 041
     Dates: start: 20100824, end: 20110104
  3. PANITUMUMAB [Suspect]
     Dosage: 6 MG, Q2WK
     Dates: start: 20101221
  4. OXALIPLATIN [Suspect]
     Indication: COLORECTAL CANCER
     Route: 041
     Dates: start: 20100824, end: 20110104
  5. ASPIRIN [Concomitant]
     Route: 048
  6. PANITUMUMAB [Suspect]
     Indication: COLORECTAL CANCER
     Dosage: 6 MG, Q2WK
     Dates: start: 20100712, end: 20101119
  7. ANPLAG [Concomitant]
     Route: 048

REACTIONS (3)
  - DERMATITIS ACNEIFORM [None]
  - PARONYCHIA [None]
  - GASTRIC ULCER [None]
